FAERS Safety Report 4890036-9 (Version None)
Quarter: 2006Q1

REPORT INFORMATION
  Report Type: 
  Country: None (occurrence: None)
  Receive Date: 20060123
  Receipt Date: 20060123
  Transmission Date: 20060701
  Serious: Yes (Hospitalization)
  Sender: FDA-Public Use
  Company Number: None

PATIENT
  Age: 57 Year
  Sex: Male

DRUGS (1)
  1. POLYGAM [Suspect]
     Indication: POLYMYOSITIS
     Dosage: IV
     Route: 042
     Dates: start: 20030114, end: 20030115

REACTIONS (5)
  - CREPITATIONS [None]
  - DYSPNOEA [None]
  - ELECTROLYTE IMBALANCE [None]
  - RENAL FAILURE ACUTE [None]
  - RENAL TUBULAR DISORDER [None]
